FAERS Safety Report 7219425-4 (Version None)
Quarter: 2011Q1

REPORT INFORMATION
  Report Type: 
  Country: None (occurrence: None)
  Receive Date: 20110111
  Receipt Date: 20110104
  Transmission Date: 20110831
  Serious: Yes (Hospitalization)
  Sender: FDA-Public Use
  Company Number: IT-SANOFI-AVENTIS-2011SA000277

PATIENT
  Age: 61 Year
  Sex: Male

DRUGS (12)
  1. CLEXANE [Suspect]
     Indication: ACUTE MYOCARDIAL INFARCTION
     Route: 058
     Dates: start: 20101119, end: 20101125
  2. ROCEPHIN [Suspect]
     Indication: ANTIBIOTIC PROPHYLAXIS
     Route: 042
     Dates: start: 20101118, end: 20101125
  3. CLOPIDOGREL [Concomitant]
     Route: 048
  4. ACETYLSALICYLIC ACID SRT [Concomitant]
     Route: 048
  5. EPINEPHRINE [Concomitant]
     Route: 065
  6. REOPRO [Suspect]
     Indication: ACUTE MYOCARDIAL INFARCTION
     Route: 040
     Dates: start: 20101117, end: 20101117
  7. NOREPINEPHRINE BITARTRATE [Concomitant]
     Route: 065
  8. RILATEN [Concomitant]
     Route: 065
  9. BUSCOPAN [Concomitant]
     Route: 065
  10. FUROSEMIDE [Concomitant]
     Route: 042
  11. ATORVASTATIN [Concomitant]
     Route: 048
  12. CHLORPROMAZINE [Concomitant]
     Dosage: DOSE:5 UNIT(S)
     Route: 048

REACTIONS (2)
  - THROMBOCYTOPENIA [None]
  - LEUKOPENIA [None]
